FAERS Safety Report 5727830-8 (Version None)
Quarter: 2008Q2

REPORT INFORMATION
  Report Type: 
  Country: None (occurrence: None)
  Receive Date: 20080501
  Receipt Date: 20071011
  Transmission Date: 20081010
  Serious: Yes (Hospitalization)
  Sender: FDA-Public Use
  Company Number: PHEH2007US13513

PATIENT
  Sex: Female

DRUGS (2)
  1. LOTREL [Suspect]
     Dosage: ORAL
     Route: 048
  2. AMLODIPINE BESYLATE AND BENAZEPRIL HCL [Suspect]
     Dosage: ORAL
     Route: 048

REACTIONS (2)
  - MIGRAINE [None]
  - TONGUE OEDEMA [None]
